FAERS Safety Report 11184239 (Version 4)
Quarter: 2015Q4

REPORT INFORMATION
  Report Type: Spontaneous
  Country: US (occurrence: US)
  Receive Date: 20150612
  Receipt Date: 20151019
  Transmission Date: 20160304
  Serious: Yes (Hospitalization)
  Sender: FDA-Public Use
  Company Number: US-PFIZER INC-2015196221

PATIENT
  Age: 53 Year
  Sex: Female
  Weight: 79 kg

DRUGS (3)
  1. ATORVASTATIN CALCIUM. [Suspect]
     Active Substance: ATORVASTATIN CALCIUM
     Indication: BLOOD CHOLESTEROL INCREASED
     Dosage: 20 MG, DAILY
     Dates: start: 20150529, end: 2015
  2. LIPITOR [Suspect]
     Active Substance: ATORVASTATIN CALCIUM
     Indication: BLOOD CHOLESTEROL INCREASED
     Dosage: 20 MG, 1X/DAY
  3. VERAPAMIL [Concomitant]
     Active Substance: VERAPAMIL HYDROCHLORIDE
     Indication: HYPERTENSION
     Dosage: 120 MG, UNK
     Dates: start: 2006

REACTIONS (5)
  - Pain [Unknown]
  - Arthralgia [Unknown]
  - Abdominal pain [Recovered/Resolved]
  - Myalgia [Recovered/Resolved]
  - Condition aggravated [Unknown]

NARRATIVE: CASE EVENT DATE: 2015
